FAERS Safety Report 19173721 (Version 1)
Quarter: 2021Q2

REPORT INFORMATION
  Report Type: Spontaneous
  Country: US (occurrence: US)
  Receive Date: 20210423
  Receipt Date: 20210423
  Transmission Date: 20210717
  Serious: Yes (Other)
  Sender: FDA-Public Use
  Company Number: US-FRESENIUS KABI-FK202104093

PATIENT
  Age: 23 Year
  Sex: Female

DRUGS (3)
  1. DOXORUBICIN (MANUFACTURER UNKNOWN) [Suspect]
     Active Substance: DOXORUBICIN
     Indication: PANCREATOBLASTOMA
     Dosage: FIVE?DAY REGIMEN OF CHEMOTHERAPY
     Route: 065
  2. CISPLATIN (MANUFACTURER UNKNOWN) [Suspect]
     Active Substance: CISPLATIN
     Indication: PANCREATOBLASTOMA
     Dosage: FIVE?DAY REGIMEN OF CHEMOTHERAPY
     Route: 065
  3. ETOPOSIDE (MANUFACTURER UNKNOWN) [Suspect]
     Active Substance: ETOPOSIDE
     Indication: PANCREATOBLASTOMA
     Dosage: FIVE?DAY REGIMEN OF CHEMOTHERAPY
     Route: 065

REACTIONS (9)
  - Tinnitus [Unknown]
  - Maternal exposure timing unspecified [Unknown]
  - Hypotension [Unknown]
  - Nausea [Unknown]
  - Syncope [Unknown]
  - Cardiac murmur [Unknown]
  - Staphylococcal infection [Unknown]
  - Abdominal pain [Unknown]
  - Tension headache [Unknown]
